FAERS Safety Report 10143782 (Version 1)
Quarter: 2014Q2

REPORT INFORMATION
  Report Type: Spontaneous
  Country: US (occurrence: US)
  Receive Date: 20140430
  Receipt Date: 20140430
  Transmission Date: 20141212
  Serious: Yes (Death)
  Sender: FDA-Public Use
  Company Number: US-GLAXOSMITHKLINE-A1059131A

PATIENT
  Age: 48 Year
  Sex: Male

DRUGS (1)
  1. VOTRIENT [Suspect]
     Indication: RENAL CANCER
     Dosage: 200MG UNKNOWN
     Route: 065
     Dates: start: 20130222

REACTIONS (4)
  - Death [Fatal]
  - Malaise [Not Recovered/Not Resolved]
  - General physical health deterioration [Unknown]
  - Treatment noncompliance [Unknown]
